FAERS Safety Report 20304109 (Version 3)
Quarter: 2022Q1

REPORT INFORMATION
  Report Type: Spontaneous
  Country: DE (occurrence: DE)
  Receive Date: 20220106
  Receipt Date: 20220227
  Transmission Date: 20220424
  Serious: Yes (Other)
  Sender: FDA-Public Use
  Company Number: DE-JNJFOC-20211263550

PATIENT
  Age: 13 Year
  Sex: Female

DRUGS (4)
  1. RISPERDAL [Suspect]
     Active Substance: RISPERIDONE
     Indication: Product used for unknown indication
     Route: 065
     Dates: start: 202111
  2. ARIPIPRAZOLE [Suspect]
     Active Substance: ARIPIPRAZOLE
     Indication: Product used for unknown indication
     Route: 065
     Dates: start: 202111
  3. CHOLECALCIFEROL [Concomitant]
     Active Substance: CHOLECALCIFEROL
  4. MAGNESIUM [Concomitant]
     Active Substance: MAGNESIUM

REACTIONS (9)
  - Adverse event [Recovering/Resolving]
  - Product administration error [Unknown]
  - Iron deficiency [Unknown]
  - Myalgia [Recovering/Resolving]
  - Pain [Recovering/Resolving]
  - Amenorrhoea [Not Recovered/Not Resolved]
  - Insomnia [Recovering/Resolving]
  - Weight increased [Recovering/Resolving]
  - Blood prolactin increased [Unknown]

NARRATIVE: CASE EVENT DATE: 20210101
